FAERS Safety Report 7034867-8 (Version None)
Quarter: 2010Q4

REPORT INFORMATION
  Report Type: 
  Country: None (occurrence: None)
  Receive Date: 20101008
  Receipt Date: 20100928
  Transmission Date: 20110411
  Serious: Yes (Death, Hospitalization, Other)
  Sender: FDA-Public Use
  Company Number: BR-ROCHE-729381

PATIENT
  Sex: Male

DRUGS (1)
  1. ACTEMRA [Suspect]
     Indication: STILL'S DISEASE ADULT ONSET
     Dosage: FORM: INFUSION
     Route: 065

REACTIONS (7)
  - ABASIA [None]
  - ANAEMIA [None]
  - ARTHRALGIA [None]
  - ARTHRITIS BACTERIAL [None]
  - BACTERIAL TOXAEMIA [None]
  - JOINT SWELLING [None]
  - RENAL FAILURE [None]
